FAERS Safety Report 21148002 (Version 1)
Quarter: 2022Q3

REPORT INFORMATION
  Report Type: Report from Study
  Country: US (occurrence: None)
  Receive Date: 20220729
  Receipt Date: 20220729
  Transmission Date: 20221026
  Serious: Yes (Other)
  Sender: FDA-Public Use
  Company Number: 2022A266145

PATIENT
  Sex: Male

DRUGS (1)
  1. CALQUENCE [Suspect]
     Active Substance: ACALABRUTINIB
     Indication: Mantle cell lymphoma
     Route: 048

REACTIONS (10)
  - Aspartate aminotransferase abnormal [Unknown]
  - Platelet count abnormal [Unknown]
  - Erythema [Unknown]
  - Skin atrophy [Unknown]
  - Contusion [Unknown]
  - Haemorrhage [Unknown]
  - Renal disorder [Unknown]
  - Blood bilirubin abnormal [Unknown]
  - Decreased interest [Unknown]
  - Product dose omission in error [Unknown]
